FAERS Safety Report 5268845-6 (Version None)
Quarter: 2007Q1

REPORT INFORMATION
  Report Type: 
  Country: None (occurrence: None)
  Receive Date: 20061213
  Receipt Date: 20031124
  Transmission Date: 20070707
  Serious: Yes (Other)
  Sender: FDA-Public Use
  Company Number: 2003UW14503

PATIENT
  Sex: Male
  Weight: 57.1532 kg

DRUGS (8)
  1. IRESSA [Suspect]
     Indication: NON-SMALL CELL LUNG CANCER
     Dosage: 250 MG QD PO
     Route: 048
     Dates: start: 20031028
  2. HYDROCODONE BITARTRATE + ACETAMINOPHEN [Suspect]
     Indication: DRUG USE FOR UNKNOWN INDICATION
  3. MUCOMYST [Concomitant]
  4. ALBUTEROL [Concomitant]
  5. VERAPAMIL [Concomitant]
  6. DIGOXIN [Concomitant]
  7. VITAMINS [Concomitant]
  8. PREDNISONE [Concomitant]

REACTIONS (7)
  - ABDOMINAL PAIN UPPER [None]
  - ASTHENIA [None]
  - COUGH [None]
  - DRUG INTERACTION [None]
  - DYSPNOEA [None]
  - HAEMOPTYSIS [None]
  - OEDEMA PERIPHERAL [None]
